FAERS Safety Report 11779137 (Version 1)
Quarter: 2015Q4

REPORT INFORMATION
  Report Type: Report from Study
  Country: CH (occurrence: CH)
  Receive Date: 20151125
  Receipt Date: 20151125
  Transmission Date: 20160304
  Serious: Yes (Other)
  Sender: FDA-Public Use
  Company Number: CH-ABBVIE-15P-151-1505636-00

PATIENT
  Age: 82 Year
  Sex: Male

DRUGS (2)
  1. DUODOPA [Suspect]
     Active Substance: CARBIDOPA\LEVODOPA
     Dosage: MD: 13ML, CD: 3.4ML/H, ED: 2.5ML, 16H THERAPY
     Route: 050
     Dates: start: 20151119
  2. DUODOPA [Suspect]
     Active Substance: CARBIDOPA\LEVODOPA
     Indication: PRODUCT USED FOR UNKNOWN INDICATION
     Dosage: MD: 11ML, CD: 3.4ML/H, ED: 2.5ML, 16H THERAPY
     Route: 050
     Dates: start: 201308, end: 20151118

REACTIONS (6)
  - Unintentional medical device removal [Recovered/Resolved]
  - Benign bone neoplasm [Unknown]
  - Medical device change [Recovered/Resolved]
  - Device dislocation [Recovered/Resolved]
  - Pain [Unknown]
  - Device connection issue [Recovered/Resolved]

NARRATIVE: CASE EVENT DATE: 20151118
